FAERS Safety Report 23737018 (Version 2)
Quarter: 2024Q3

REPORT INFORMATION
  Report Type: Spontaneous
  Country: US (occurrence: US)
  Receive Date: 20240412
  Receipt Date: 20240717
  Transmission Date: 20241016
  Serious: Yes (Other)
  Sender: TEVA
  Company Number: US-TEVA-VS-3178273

PATIENT
  Sex: Female

DRUGS (1)
  1. UZEDY [Suspect]
     Active Substance: RISPERIDONE
     Indication: Schizophrenia
     Dosage: 125/0.35 MG/ML
     Route: 065
     Dates: start: 20240222

REACTIONS (12)
  - Suicide threat [Unknown]
  - Suicide attempt [Unknown]
  - Insomnia [Unknown]
  - General physical health deterioration [Unknown]
  - Hallucination, auditory [Unknown]
  - Injection site pain [Unknown]
  - Suicidal ideation [Unknown]
  - Unresponsive to stimuli [Unknown]
  - Homicidal ideation [Unknown]
  - Hallucination [Unknown]
  - Drug ineffective [Unknown]
  - Negative thoughts [Unknown]

NARRATIVE: CASE EVENT DATE: 20240101
